FAERS Safety Report 6354361-7 (Version None)
Quarter: 2009Q3

REPORT INFORMATION
  Report Type: 
  Country: None (occurrence: None)
  Receive Date: 20090914
  Receipt Date: 20090908
  Transmission Date: 20100115
  Serious: Yes (Hospitalization)
  Sender: FDA-Public Use
  Company Number: US-BIOGENIDEC-2009BI028461

PATIENT
  Age: 60 Year
  Sex: Male

DRUGS (9)
  1. TYSABRI [Suspect]
     Indication: MULTIPLE SCLEROSIS
     Route: 042
     Dates: start: 20090121
  2. MECLIZINE [Concomitant]
     Route: 048
  3. BACLOFEN [Concomitant]
     Route: 048
  4. BUMEX [Concomitant]
  5. KLONOPIN [Concomitant]
     Route: 048
  6. PROZAC [Concomitant]
  7. ADDERALL XR 30 [Concomitant]
  8. DURAGESIC-100 [Concomitant]
     Route: 062
  9. VICODIN [Concomitant]

REACTIONS (2)
  - CELLULITIS [None]
  - HERPES ZOSTER [None]
